FAERS Safety Report 11780432 (Version 1)
Quarter: 2015Q4

REPORT INFORMATION
  Report Type: Spontaneous
  Country: US (occurrence: US)
  Receive Date: 20151126
  Receipt Date: 20151126
  Transmission Date: 20160305
  Serious: No
  Sender: FDA-Public Use
  Company Number: US-JNJFOC-20151111024

PATIENT
  Age: 24 Month
  Sex: Male
  Weight: 10.89 kg

DRUGS (2)
  1. CHILDRENS MOTRIN [Suspect]
     Active Substance: IBUPROFEN
     Indication: TEETHING
     Dosage: AT ONCE, NIGHTLY
     Route: 048
     Dates: end: 20151108
  2. CHILDRENS MOTRIN [Suspect]
     Active Substance: IBUPROFEN
     Route: 048

REACTIONS (3)
  - Irritability [Recovering/Resolving]
  - Product contamination [Unknown]
  - Poor quality drug administered [Unknown]
